FAERS Safety Report 5707271-X (Version None)
Quarter: 2008Q2

REPORT INFORMATION
  Report Type: 
  Country: None (occurrence: None)
  Receive Date: 20080416
  Receipt Date: 20080408
  Transmission Date: 20081010
  Serious: Yes (Hospitalization, Other)
  Sender: FDA-Public Use
  Company Number: PHBS2008FR03952

PATIENT
  Age: 8 Month
  Sex: Female

DRUGS (5)
  1. BASILIXIMAB [Suspect]
     Indication: LIVER TRANSPLANT
     Route: 042
  2. TACROLIMUS [Suspect]
     Indication: LIVER TRANSPLANT
     Route: 048
  3. TICARCILLIN [Concomitant]
     Route: 042
  4. CLAVULANATE POTASSIUM [Concomitant]
     Dosage: UNK, UNK
     Route: 042
  5. FLUCONAZOLE [Concomitant]

REACTIONS (11)
  - ASPERGILLOSIS [None]
  - ATELECTASIS [None]
  - BILE DUCT OBSTRUCTION [None]
  - CARDIAC VALVE VEGETATION [None]
  - DYSPNOEA [None]
  - FUNGAL ENDOCARDITIS [None]
  - FUNGAL TEST POSITIVE [None]
  - GAMMA-GLUTAMYLTRANSFERASE INCREASED [None]
  - OXYGEN SATURATION DECREASED [None]
  - PLEURAL EFFUSION [None]
  - PYREXIA [None]
